FAERS Safety Report 9788473 (Version 2)
Quarter: 2013Q4

REPORT INFORMATION
  Report Type: Spontaneous
  Country: US (occurrence: US)
  Receive Date: 20131230
  Receipt Date: 20131230
  Transmission Date: 20140711
  Serious: Yes (Hospitalization)
  Sender: FDA-Public Use
  Company Number: US-B.I. PHARMACEUTICALS,INC./RIDGEFIELD-2013-BI-20963BP

PATIENT
  Age: 71 Year
  Sex: Male
  Weight: 99.79 kg

DRUGS (5)
  1. PRADAXA [Suspect]
     Indication: ANTICOAGULANT THERAPY
     Dosage: 300 MG
     Dates: start: 20120119, end: 20130316
  2. PRADAXA [Suspect]
     Indication: ATRIAL FIBRILLATION
  3. TOPROL XL [Concomitant]
     Dosage: 25 MG
     Route: 048
  4. CRESTOR [Concomitant]
     Dosage: 20 MG
  5. GLUCOSAMINE [Concomitant]

REACTIONS (2)
  - Gastrointestinal haemorrhage [Unknown]
  - Haemorrhagic anaemia [Unknown]
